FAERS Safety Report 7651172-7 (Version None)
Quarter: 2011Q3

REPORT INFORMATION
  Report Type: 
  Country: None (occurrence: None)
  Receive Date: 20110802
  Receipt Date: 20110728
  Transmission Date: 20111222
  Serious: Yes (Other)
  Sender: FDA-Public Use
  Company Number: AU-PFIZER INC-2011157469

PATIENT
  Sex: Male
  Weight: 86 kg

DRUGS (8)
  1. DERALIN [Concomitant]
     Dosage: 80 MG, 2X/DAY
     Route: 048
  2. VARENICLINE TARTRATE [Suspect]
     Indication: SMOKING CESSATION THERAPY
     Dosage: 1 MG, 2X/DAY
     Route: 048
     Dates: end: 20110606
  3. CALCIUM WITH VITAMIN D [Concomitant]
     Dosage: 500MG/400UNITS
     Route: 048
  4. DIAZEPAM [Concomitant]
     Dosage: 5 MG, 2X/DAY
     Route: 048
  5. DESVENLAFAXINE SUCCINATE [Concomitant]
     Dosage: 100 MG, 1X/DAY
     Route: 048
  6. LEVOTHYROXINE SODIUM [Concomitant]
     Dosage: 100 UG, 1X/DAY
     Route: 048
  7. CODALGIN FORTE [Concomitant]
     Dosage: 500MG/30MG ONE TO TWO TABLETS FOUR TIMES DAILY
     Route: 048
  8. OXYCONTIN [Concomitant]
     Dosage: 20 MG, 2X/DAY
     Route: 048

REACTIONS (4)
  - HALLUCINATION [None]
  - PSYCHIATRIC SYMPTOM [None]
  - HYPERSOMNIA [None]
  - ABNORMAL BEHAVIOUR [None]
